FAERS Safety Report 6834403-2 (Version None)
Quarter: 2010Q3

REPORT INFORMATION
  Report Type: 
  Country: None (occurrence: None)
  Receive Date: 20100712
  Receipt Date: 20070413
  Transmission Date: 20110219
  Serious: No
  Sender: FDA-Public Use
  Company Number: US-PFIZER INC-2007030881

PATIENT
  Sex: Female
  Weight: 77.56 kg

DRUGS (6)
  1. CHANTIX [Suspect]
     Dates: start: 20070404
  2. LISINOPRIL [Concomitant]
     Indication: HYPERTENSION
  3. FELODIPINE [Concomitant]
     Indication: HYPERTENSION
  4. THEOPHYLLINE [Concomitant]
     Indication: CHRONIC OBSTRUCTIVE PULMONARY DISEASE
  5. MECLOZINE HYDROCHLORIDE [Concomitant]
     Indication: DIZZINESS
  6. TRAZODONE HYDROCHLORIDE [Concomitant]
     Indication: SLEEP DISORDER

REACTIONS (4)
  - ABDOMINAL PAIN UPPER [None]
  - INSOMNIA [None]
  - NAUSEA [None]
  - VOMITING [None]
